FAERS Safety Report 22325157 (Version 2)
Quarter: 2024Q1

REPORT INFORMATION
  Report Type: Spontaneous
  Country: US (occurrence: US)
  Receive Date: 20230516
  Receipt Date: 20240126
  Transmission Date: 20240409
  Serious: No
  Sender: FDA-Public Use
  Company Number: US-PFIZER INC-PV202300083361

PATIENT
  Age: 75 Year
  Sex: Female
  Weight: 86.621 kg

DRUGS (4)
  1. IBRANCE [Suspect]
     Active Substance: PALBOCICLIB
     Indication: Breast cancer metastatic
     Dosage: 125 MG/1 TABLET QD ON DAYS 1-21 OF EACH 28-DAY CYCLE
     Route: 048
     Dates: start: 202205
  2. IBRANCE [Suspect]
     Active Substance: PALBOCICLIB
     Indication: Breast cancer female
  3. FEMARA [Concomitant]
     Active Substance: LETROZOLE
     Indication: Breast cancer metastatic
  4. FEMARA [Concomitant]
     Active Substance: LETROZOLE
     Indication: Breast cancer female

REACTIONS (2)
  - Hypoacusis [Unknown]
  - White blood cell count decreased [Unknown]
